FAERS Safety Report 10428033 (Version 1)
Quarter: 2014Q3

REPORT INFORMATION
  Report Type: Spontaneous
  Country: AU (occurrence: AU)
  Receive Date: 20140903
  Receipt Date: 20140903
  Transmission Date: 20150326
  Serious: Yes (Other)
  Sender: FDA-Public Use
  Company Number: AU-JNJFOC-20140824058

PATIENT
  Sex: Female

DRUGS (1)
  1. TOPIRAMATE. [Suspect]
     Active Substance: TOPIRAMATE
     Indication: EPILEPSY
     Route: 065

REACTIONS (6)
  - Exposure during pregnancy [Unknown]
  - Convulsion [Unknown]
  - Partial seizures [Unknown]
  - Abortion spontaneous [Unknown]
  - Epilepsy [Unknown]
  - Foetal death [Unknown]
